FAERS Safety Report 18935224 (Version 1)
Quarter: 2021Q1

REPORT INFORMATION
  Report Type: Spontaneous
  Country: US (occurrence: US)
  Receive Date: 20210224
  Receipt Date: 20210224
  Transmission Date: 20210420
  Serious: Yes (Other)
  Sender: FDA-Public Use
  Company Number: US-TEVA-2021-US-1882454

PATIENT
  Age: 70 Year
  Sex: Male

DRUGS (2)
  1. BUPRENORPHINE W/NALOXONE [Suspect]
     Active Substance: BUPRENORPHINE HYDROCHLORIDE\NALOXONE HYDROCHLORIDE
     Dosage: ONE TABLET DAILY THE 8 MG/2 MG TABLETS, AND TWO TABLETS DAILY OF THE 2 MG/0.5 MG TABLETS
     Route: 065
     Dates: start: 2019
  2. BUPRENORPHINE AND NALOXONE [Suspect]
     Active Substance: BUPRENORPHINE HYDROCHLORIDE\NALOXONE HYDROCHLORIDE
     Route: 065

REACTIONS (3)
  - Cholelithiasis [Unknown]
  - Gallbladder enlargement [Unknown]
  - Pain [Not Recovered/Not Resolved]
